FAERS Safety Report 4454737-9 (Version None)
Quarter: 2004Q3

REPORT INFORMATION
  Report Type: 
  Country: None (occurrence: None)
  Receive Date: 20040920
  Receipt Date: 20040920
  Transmission Date: 20050211
  Serious: Yes (Hospitalization)
  Sender: FDA-Public Use
  Company Number: None

PATIENT
  Age: 71 Year
  Sex: Female
  Weight: 52.3905 kg

DRUGS (10)
  1. DOCETAXEL  20MG/ M2  AVENTIS [Suspect]
     Indication: NON-SMALL CELL LUNG CANCER
     Dosage: 115 MG IV
     Route: 042
     Dates: start: 20040720
  2. DOCETAXEL  20MG/ M2  AVENTIS [Suspect]
     Indication: NON-SMALL CELL LUNG CANCER
     Dosage: 115 MG IV
     Route: 042
     Dates: start: 20040817
  3. CARBOPLATIN [Suspect]
     Indication: NON-SMALL CELL LUNG CANCER
     Dosage: 583 MG IV
     Route: 042
     Dates: start: 20040720
  4. CARBOPLATIN [Suspect]
     Indication: NON-SMALL CELL LUNG CANCER
     Dosage: 583 MG IV
     Route: 042
     Dates: start: 20040817
  5. ACYCLOVIR [Concomitant]
  6. CELEBREX [Concomitant]
  7. MULTI-VITAMIN [Concomitant]
  8. COLACE [Concomitant]
  9. SENNA [Concomitant]
  10. COUMADIN [Concomitant]

REACTIONS (6)
  - DISEASE PROGRESSION [None]
  - DYSPNOEA [None]
  - LUNG INFILTRATION [None]
  - PLEURAL EFFUSION [None]
  - PRODUCTIVE COUGH [None]
  - SPUTUM DISCOLOURED [None]
